FAERS Safety Report 21396015 (Version 1)
Quarter: 2022Q3

REPORT INFORMATION
  Report Type: Spontaneous
  Country: JP (occurrence: JP)
  Receive Date: 20220930
  Receipt Date: 20220930
  Transmission Date: 20221026
  Serious: Yes (Other)
  Sender: FDA-Public Use
  Company Number: JP-PFIZER INC-PV202200072156

PATIENT
  Age: 49 Year
  Sex: Male
  Weight: 61.7 kg

DRUGS (17)
  1. VFEND [Suspect]
     Active Substance: VORICONAZOLE
     Dosage: 200 MG X 2 TABLETS AND 50 MG X 4 TABLETS, TWICE A DAY
     Route: 048
     Dates: start: 20220408, end: 20220408
  2. VFEND [Suspect]
     Active Substance: VORICONAZOLE
     Dosage: 200 MG X 2 TABLETS, TWICE A DAY
     Route: 048
     Dates: start: 20220409, end: 20220510
  3. VFEND [Suspect]
     Active Substance: VORICONAZOLE
     Dosage: 50 MG X 4 TABLETS, TWICE A DAY
     Route: 048
     Dates: start: 20220510, end: 20220514
  4. FERRIC CITRATE ANHYDROUS [Concomitant]
     Active Substance: FERRIC CITRATE ANHYDROUS
     Dosage: UNK
  5. ONEALFA [Concomitant]
     Active Substance: ALFACALCIDOL
     Dosage: UNK
  6. FOSRENOL [Concomitant]
     Active Substance: LANTHANUM CARBONATE
     Dosage: UNK
  7. AZILSARTAN KAMEDOXOMIL [Concomitant]
     Active Substance: AZILSARTAN KAMEDOXOMIL
     Dosage: UNK
  8. FAMOTIDINE [Concomitant]
     Active Substance: FAMOTIDINE
     Dosage: UNK
  9. CARVEDILOL [Concomitant]
     Active Substance: CARVEDILOL
     Dosage: UNK
  10. REMITCH OD [Concomitant]
     Dosage: UNK
  11. ALESION [Concomitant]
     Active Substance: EPINASTINE HYDROCHLORIDE
     Dosage: UNK
  12. METHYLCOBALAMIN [Concomitant]
     Active Substance: METHYLCOBALAMIN
     Dosage: UNK
  13. IMIDAPRIL HYDROCHLORIDE [Concomitant]
     Active Substance: IMIDAPRIL HYDROCHLORIDE
     Dosage: UNK
  14. CARDENALIN [Concomitant]
     Active Substance: DOXAZOSIN MESYLATE
     Dosage: UNK
  15. HALCION [Concomitant]
     Active Substance: TRIAZOLAM
     Dosage: UNK
  16. BIO-THREE [Concomitant]
     Active Substance: HERBALS
     Dosage: UNK
  17. OZEMPIC [Concomitant]
     Active Substance: SEMAGLUTIDE
     Dosage: UNK

REACTIONS (2)
  - Liver disorder [Recovering/Resolving]
  - Gamma-glutamyltransferase increased [Recovering/Resolving]

NARRATIVE: CASE EVENT DATE: 20220413
